FAERS Safety Report 21823238 (Version 1)
Quarter: 2023Q1

REPORT INFORMATION
  Report Type: Report from Study
  Country: US (occurrence: US)
  Receive Date: 20230105
  Receipt Date: 20230105
  Transmission Date: 20230417
  Serious: Yes (Other)
  Sender: FDA-Public Use
  Company Number: US-BAUSCH-BL-2021-033199

PATIENT
  Age: 83 Year
  Sex: Female

DRUGS (1)
  1. XIFAXAN [Suspect]
     Active Substance: RIFAXIMIN
     Indication: Product used for unknown indication
     Route: 065

REACTIONS (9)
  - Spinal fracture [Unknown]
  - Dementia with Lewy bodies [Unknown]
  - Encephalopathy [Unknown]
  - Hallucination [Unknown]
  - Weight decreased [Unknown]
  - Varices oesophageal [Unknown]
  - Back pain [Unknown]
  - Ascites [Recovered/Resolved]
  - Product use issue [Unknown]

NARRATIVE: CASE EVENT DATE: 20190101
